FAERS Safety Report 14785582 (Version 1)
Quarter: 2018Q2

REPORT INFORMATION
  Report Type: Spontaneous
  Country: US (occurrence: US)
  Receive Date: 20180420
  Receipt Date: 20180420
  Transmission Date: 20180711
  Serious: Yes (Other)
  Sender: FDA-Public Use
  Company Number: PHEH2018US014825

PATIENT
  Sex: Female
  Weight: 17.5 kg

DRUGS (11)
  1. ILARIS [Suspect]
     Active Substance: CANAKINUMAB
     Indication: STILL^S DISEASE
     Route: 065
  2. ANAKINRA [Suspect]
     Active Substance: ANAKINRA
     Dosage: 200 MG, QD
     Route: 065
  3. PREDNISOLONE. [Concomitant]
     Active Substance: PREDNISOLONE
     Indication: PRODUCT USED FOR UNKNOWN INDICATION
     Dosage: 20 MG, QD
     Route: 065
  4. ANAKINRA [Suspect]
     Active Substance: ANAKINRA
     Indication: PRODUCT USED FOR UNKNOWN INDICATION
     Dosage: 200 MG, TID
     Route: 065
  5. PREDNISOLONE ACETATE. [Suspect]
     Active Substance: PREDNISOLONE ACETATE
     Indication: STILL^S DISEASE
     Route: 065
  6. ABATACEPT [Suspect]
     Active Substance: ABATACEPT
     Indication: PRODUCT USED FOR UNKNOWN INDICATION
     Route: 065
  7. ANAKINRA [Suspect]
     Active Substance: ANAKINRA
     Dosage: 100 MG, QD
     Route: 065
  8. METHOTREXATE SODIUM. [Suspect]
     Active Substance: METHOTREXATE SODIUM
     Indication: STILL^S DISEASE
     Route: 065
  9. ANAKINRA [Suspect]
     Active Substance: ANAKINRA
     Dosage: 200 MG, QID
     Route: 065
  10. CYCLOSPORIN [Suspect]
     Active Substance: CYCLOSPORINE
     Indication: STILL^S DISEASE
     Route: 065
  11. ANAKINRA [Suspect]
     Active Substance: ANAKINRA
     Dosage: 150 MG, EVERY 4 WEEKS
     Route: 065

REACTIONS (16)
  - Cough [Unknown]
  - Splenomegaly [Unknown]
  - Pyrexia [Unknown]
  - Interstitial lung disease [Recovering/Resolving]
  - Tachypnoea [Unknown]
  - Pneumonia lipoid [Unknown]
  - Aspartate aminotransferase increased [Unknown]
  - Clubbing [Unknown]
  - Arthritis [Unknown]
  - Rash [Unknown]
  - Alveolar proteinosis [Unknown]
  - Rash erythematous [Unknown]
  - Serum ferritin increased [Unknown]
  - Blood lactate dehydrogenase increased [Unknown]
  - Anaemia [Unknown]
  - Lymphadenopathy [Unknown]
